FAERS Safety Report 8330590-8 (Version None)
Quarter: 2012Q2

REPORT INFORMATION
  Report Type: 
  Country: None (occurrence: None)
  Receive Date: 20120502
  Receipt Date: 20120405
  Transmission Date: 20120825
  Serious: No
  Sender: FDA-Public Use
  Company Number: US-AMGEN-USASP2012021686

PATIENT
  Age: 32 Year
  Sex: Female

DRUGS (2)
  1. TREXALL [Concomitant]
     Dosage: UNK, WEEKLY
     Route: 048
     Dates: start: 20111001
  2. ENBREL [Suspect]
     Indication: PSORIATIC ARTHROPATHY
     Dosage: 50 MG, QWK
     Dates: start: 20120117

REACTIONS (9)
  - PYREXIA [None]
  - INFLUENZA [None]
  - PAIN [None]
  - ASTHMA [None]
  - HEPATIC ENZYME INCREASED [None]
  - NASOPHARYNGITIS [None]
  - FATIGUE [None]
  - CHILLS [None]
  - WHEEZING [None]
